FAERS Safety Report 9690568 (Version 2)
Quarter: 2013Q4

REPORT INFORMATION
  Report Type: Report from Study
  Country: US (occurrence: US)
  Receive Date: 20131115
  Receipt Date: 20131121
  Transmission Date: 20140711
  Serious: Yes (Other)
  Sender: FDA-Public Use
  Company Number: PHEH2013US023791

PATIENT
  Sex: Female

DRUGS (2)
  1. GILENYA [Suspect]
     Indication: MULTIPLE SCLEROSIS
     Dosage: 0.5 MG, QD
     Route: 048
     Dates: start: 201303, end: 20131031
  2. TAMOXIFEN [Concomitant]
     Indication: BREAST CANCER
     Dosage: 100 MG, QHS

REACTIONS (7)
  - Multiple sclerosis [Unknown]
  - Central nervous system lesion [Unknown]
  - Muscular weakness [Unknown]
  - Leukopenia [Recovering/Resolving]
  - Lymphocyte count decreased [Unknown]
  - Upper respiratory tract infection [Unknown]
  - Nasopharyngitis [Unknown]
